FAERS Safety Report 18497817 (Version 1)
Quarter: 2020Q4

REPORT INFORMATION
  Report Type: Spontaneous
  Country: CH (occurrence: CH)
  Receive Date: 20201112
  Receipt Date: 20201112
  Transmission Date: 20210114
  Serious: Yes (Other)
  Sender: FDA-Public Use
  Company Number: CH-ASTRAZENECA-2020SF44794

PATIENT
  Age: 69 Year
  Sex: Male
  Weight: 70 kg

DRUGS (6)
  1. ALVESCO [Concomitant]
     Active Substance: CICLESONIDE
     Dosage: IN TOTAL160.0UG UNKNOWN
     Route: 055
     Dates: start: 2017
  2. SEQUASE [Suspect]
     Active Substance: QUETIAPINE FUMARATE
     Indication: PSYCHOTIC DISORDER
     Dosage: 25MG-0-0-50MG , IN TOTAL
     Route: 048
     Dates: start: 20200713, end: 20200824
  3. CALCIMAGON D3 [Concomitant]
     Active Substance: CALCIUM\CHOLECALCIFEROL
     Dosage: IN TOTAL
     Route: 048
     Dates: start: 2020
  4. NEBILET [Concomitant]
     Active Substance: NEBIVOLOL
     Dosage: IN TOTAL2.5MG UNKNOWN
     Route: 048
     Dates: start: 2016
  5. PERINDOPRIL INDAPAMID [Concomitant]
     Active Substance: INDAPAMIDE\PERINDOPRIL
     Dosage: IN TOTAL
     Route: 048
     Dates: start: 2016
  6. LYRICA [Concomitant]
     Active Substance: PREGABALIN
     Dosage: IN TOTAL150.0MG UNKNOWN
     Route: 048
     Dates: start: 2018

REACTIONS (1)
  - Drug-induced liver injury [Recovered/Resolved]

NARRATIVE: CASE EVENT DATE: 20200818
